FAERS Safety Report 6816676-5 (Version None)
Quarter: 2010Q3

REPORT INFORMATION
  Report Type: 
  Country: None (occurrence: None)
  Receive Date: 20100706
  Receipt Date: 20100625
  Transmission Date: 20110219
  Serious: Yes (Life-Threatening, Hospitalization)
  Sender: FDA-Public Use
  Company Number: US-JNJFOC-20100503860

PATIENT
  Sex: Female

DRUGS (9)
  1. PREZISTA [Suspect]
     Indication: HIV INFECTION
     Route: 065
  2. RITONAVIR [Suspect]
     Indication: HIV INFECTION
     Route: 065
  3. VITAMIN TAB [Concomitant]
  4. TRUVADA [Concomitant]
     Indication: HIV INFECTION
  5. MIGRAINE MEDICATIONS [Concomitant]
     Indication: MIGRAINE
     Route: 065
  6. AZATHIOPRINE [Concomitant]
  7. AMITRIPTYLINE [Concomitant]
  8. FROVA [Concomitant]
  9. OMEPRAZOLE [Concomitant]

REACTIONS (1)
  - ANAEMIA [None]
